FAERS Safety Report 11293073 (Version 1)
Quarter: 2015Q3

REPORT INFORMATION
  Report Type: Spontaneous
  Country: US (occurrence: US)
  Receive Date: 20150722
  Receipt Date: 20150722
  Transmission Date: 20151125
  Serious: Yes (Death)
  Sender: FDA-Public Use
  Company Number: US-PFIZER INC-2015241314

PATIENT
  Age: 71 Year
  Sex: Male
  Weight: 78 kg

DRUGS (2)
  1. DURAGESIC [Concomitant]
     Active Substance: FENTANYL
     Dosage: 35 ?G, (EVERY THREE DAY)
  2. INLYTA [Suspect]
     Active Substance: AXITINIB
     Indication: RENAL CANCER
     Dosage: 5 MG, 2X/DAY
     Dates: start: 201504

REACTIONS (4)
  - Troponin increased [Unknown]
  - Renal cancer [Fatal]
  - Disease progression [Fatal]
  - Blood creatinine abnormal [Unknown]

NARRATIVE: CASE EVENT DATE: 20150708
